FAERS Safety Report 9470435 (Version 1)
Quarter: 2013Q3

REPORT INFORMATION
  Report Type: Spontaneous
  Country: US (occurrence: US)
  Receive Date: 20130822
  Receipt Date: 20130822
  Transmission Date: 20140515
  Serious: Yes (Other)
  Sender: FDA-Public Use
  Company Number: US-TEVA-427006USA

PATIENT
  Age: 24 Year
  Sex: Female
  Weight: 77.18 kg

DRUGS (1)
  1. PARAGARD 380A [Suspect]
     Indication: CONTRACEPTION
     Route: 015
     Dates: start: 20130227

REACTIONS (7)
  - Bacterial vaginosis [Recovered/Resolved]
  - Metrorrhagia [Not Recovered/Not Resolved]
  - Skin reaction [Not Recovered/Not Resolved]
  - Erythema [Not Recovered/Not Resolved]
  - Pruritus [Not Recovered/Not Resolved]
  - Vaginal discharge [Recovered/Resolved]
  - Vaginal odour [Recovered/Resolved]
